FAERS Safety Report 14039495 (Version 1)
Quarter: 2017Q4

REPORT INFORMATION
  Report Type: Spontaneous
  Country: US (occurrence: US)
  Receive Date: 20171004
  Receipt Date: 20171004
  Transmission Date: 20180321
  Serious: Yes (Other)
  Sender: FDA-Public Use
  Company Number: US-AKORN PHARMACEUTICALS-2017AKN01141

PATIENT
  Sex: Female
  Weight: 84.35 kg

DRUGS (3)
  1. UNSPECIFIED ORAL CONTRACEPTIVE [Concomitant]
  2. METFORMIN [Concomitant]
     Active Substance: METFORMIN HYDROCHLORIDE
  3. MYORISAN [Suspect]
     Active Substance: ISOTRETINOIN
     Indication: ACNE
     Dosage: 40 MG, 2X/DAY
     Route: 048
     Dates: start: 20170814, end: 201708

REACTIONS (3)
  - Lip dry [Unknown]
  - Mood altered [Unknown]
  - Dry skin [Unknown]

NARRATIVE: CASE EVENT DATE: 2017
